FAERS Safety Report 8108301-0 (Version None)
Quarter: 2012Q1

REPORT INFORMATION
  Report Type: 
  Country: None (occurrence: None)
  Receive Date: 20120202
  Receipt Date: 20120123
  Transmission Date: 20120608
  Serious: Yes (Hospitalization)
  Sender: FDA-Public Use
  Company Number: PHEH2011US04417

PATIENT
  Sex: Male

DRUGS (4)
  1. GLEEVEC [Suspect]
     Indication: NEOPLASM MALIGNANT
     Dosage: 400 MG, DAILY
     Route: 048
     Dates: start: 20110901
  2. GLEEVEC [Suspect]
     Dosage: 100 MG, DAILY
  3. SUTENT [Suspect]
     Dosage: UNK
     Dates: start: 20110501, end: 20110901
  4. GLEEVEC [Suspect]
     Indication: CHRONIC MYELOID LEUKAEMIA
     Dosage: 400 MG, BID
     Route: 048
     Dates: start: 20100524, end: 20110501

REACTIONS (3)
  - URINARY TRACT INFECTION [None]
  - MALAISE [None]
  - ESCHERICHIA INFECTION [None]
